FAERS Safety Report 9336871 (Version 5)
Quarter: 2014Q1

REPORT INFORMATION
  Report Type: Spontaneous
  Country: US (occurrence: US)
  Receive Date: 20130607
  Receipt Date: 20140127
  Transmission Date: 20141002
  Serious: Yes (Death, Hospitalization, Other)
  Sender: FDA-Public Use
  Company Number: US-PFIZER INC-2013170314

PATIENT
  Age: 65 Year
  Sex: Male

DRUGS (5)
  1. XELJANZ [Suspect]
     Indication: RHEUMATOID ARTHRITIS
     Dosage: 5 MG, BID
     Route: 048
     Dates: start: 20130501, end: 20130520
  2. ARAVA [Suspect]
     Indication: RHEUMATOID ARTHRITIS
     Dosage: 20 MG, QD
     Route: 048
     Dates: start: 20130409, end: 20130508
  3. PREDNISONE [Concomitant]
     Indication: RHEUMATOID ARTHRITIS
     Dosage: 30 MG, QD
     Dates: start: 201212
  4. FORTEO [Concomitant]
     Dosage: UNK
     Dates: start: 20130108
  5. PLAQUENIL [Concomitant]
     Dosage: UNK

REACTIONS (10)
  - Stevens-Johnson syndrome [Fatal]
  - Respiratory failure [Fatal]
  - Pneumonia [Fatal]
  - Septic shock [Fatal]
  - Fungal test positive [Unknown]
  - Rash [Not Recovered/Not Resolved]
  - Oral disorder [Unknown]
  - Platelet count decreased [Unknown]
  - Hypersensitivity [Unknown]
  - Feeling abnormal [Unknown]
